FAERS Safety Report 10664480 (Version 1)
Quarter: 2014Q4

REPORT INFORMATION
  Report Type: Spontaneous
  Country: GB (occurrence: GB)
  Receive Date: 20141219
  Receipt Date: 20141219
  Transmission Date: 20150529
  Serious: Yes (Other)
  Sender: FDA-Public Use
  Company Number: PHHY2014GB162731

PATIENT
  Age: 38 Year
  Sex: Female

DRUGS (5)
  1. INSULIN [Suspect]
     Active Substance: INSULIN NOS
     Indication: DIABETES MELLITUS
     Dosage: 250 U, QD
     Route: 065
  2. GLIBENCLAMIDE [Suspect]
     Active Substance: GLYBURIDE
     Indication: DIABETES MELLITUS
     Dosage: 7.5 MG, UNK
     Route: 065
  3. INSULIN [Suspect]
     Active Substance: INSULIN NOS
     Dosage: 1 U, PER HOUR
     Route: 042
  4. INSULIN [Suspect]
     Active Substance: INSULIN NOS
     Route: 058
  5. METFORMIN [Suspect]
     Active Substance: METFORMIN HYDROCHLORIDE
     Indication: DIABETES MELLITUS
     Dosage: 2 G, QD
     Route: 065

REACTIONS (5)
  - Macrosomia [Unknown]
  - Diabetes mellitus inadequate control [Unknown]
  - Maternal exposure during pregnancy [Unknown]
  - Polyhydramnios [Unknown]
  - Premature labour [Unknown]
